FAERS Safety Report 15632311 (Version 2)
Quarter: 2019Q1

REPORT INFORMATION
  Report Type: Spontaneous
  Country: CA (occurrence: CA)
  Receive Date: 20181119
  Receipt Date: 20190321
  Transmission Date: 20190417
  Serious: Yes (Other)
  Sender: FDA-Public Use
  Company Number: CA-ICU MEDICAL, INC.-ICU2018CA00046

PATIENT

DRUGS (10)
  1. MORPHINE SULFATE INJECTION [Suspect]
     Active Substance: MORPHINE SULFATE
     Indication: PAIN
     Dosage: UNK
     Route: 042
  2. HYDROCODONE BITARTRATE AND ACETAMINOPHEN [Suspect]
     Active Substance: ACETAMINOPHEN\HYDROCODONE BITARTRATE
     Indication: PAIN
     Route: 065
  3. DILAUDID [Suspect]
     Active Substance: HYDROMORPHONE HYDROCHLORIDE
     Indication: PAIN
     Route: 065
  4. PROPOXYPHENE. [Suspect]
     Active Substance: PROPOXYPHENE
     Indication: PAIN
     Route: 065
  5. PERCOCET [Suspect]
     Active Substance: ACETAMINOPHEN\OXYCODONE HYDROCHLORIDE
     Indication: PAIN
     Route: 065
  6. MEPERIDINE HYDROCHLORIDE INJECTION USP 300 MG/30ML (10 MG/ML) (30ML) [Suspect]
     Active Substance: MEPERIDINE HYDROCHLORIDE
     Indication: PAIN
     Route: 030
  7. OXYCONTIN [Suspect]
     Active Substance: OXYCODONE HYDROCHLORIDE
     Indication: PAIN
     Route: 065
  8. ACETAMINOPHEN W/DEXTROPROPOXYPHENE [Suspect]
     Active Substance: ACETAMINOPHEN\PROPOXYPHENE HYDROCHLORIDE
     Indication: PAIN
     Route: 065
  9. OXYCODONE HYDROCHLORIDE. [Suspect]
     Active Substance: OXYCODONE HYDROCHLORIDE
     Indication: PAIN
     Route: 065
  10. ACETAMINOPHEN/OXYCODONE HYDROCHLORIDE W/OXYCODONE TEREPHTHA [Suspect]
     Active Substance: ACETAMINOPHEN\OXYCODONE HYDROCHLORIDE\OXYCODONE TEREPHTHALATE
     Indication: PAIN
     Route: 065

REACTIONS (2)
  - Drug diversion [Unknown]
  - Intentional product misuse [Unknown]
